FAERS Safety Report 11170753 (Version 1)
Quarter: 2015Q2

REPORT INFORMATION
  Report Type: Spontaneous
  Country: US (occurrence: None)
  Receive Date: 20150604
  Receipt Date: 20150604
  Transmission Date: 20150821
  Serious: Yes (Other)
  Sender: FDA-Public Use
  Company Number: None

PATIENT
  Age: 47 Year
  Sex: Male
  Weight: 78.47 kg

DRUGS (6)
  1. PRAVASTATIN [Concomitant]
     Active Substance: PRAVASTATIN\PRAVASTATIN SODIUM
  2. MICARDIS [Concomitant]
     Active Substance: TELMISARTAN
  3. AMLODIPINE BESYLATE. [Concomitant]
     Active Substance: AMLODIPINE BESYLATE
  4. LEVOTHYROXINE [Concomitant]
     Active Substance: LEVOTHYROXINE
  5. LOW DOSE ASPIRIN [Concomitant]
     Active Substance: ASPIRIN
  6. ESCITALOPRAM [Suspect]
     Active Substance: ESCITALOPRAM OXALATE
     Indication: ANXIETY DISORDER
     Dosage: 1/2 PILL 5 DAYS -1 PILL 2 DAYS?TWICE DAILY ?TAKEN BY MOUTH
     Route: 048

REACTIONS (8)
  - Nightmare [None]
  - Abnormal dreams [None]
  - Anorgasmia [None]
  - Emotional disorder [None]
  - Premature ejaculation [None]
  - Genital hypoaesthesia [None]
  - Ejaculation failure [None]
  - Mental impairment [None]

NARRATIVE: CASE EVENT DATE: 20140508
